FAERS Safety Report 18105871 (Version 7)
Quarter: 2021Q3

REPORT INFORMATION
  Report Type: Spontaneous
  Country: PT (occurrence: PT)
  Receive Date: 20200803
  Receipt Date: 20210706
  Transmission Date: 20211014
  Serious: Yes (Life-Threatening, Hospitalization, Other)
  Sender: FDA-Public Use
  Company Number: NVSC2020PT216221

PATIENT
  Age: 70 Year
  Sex: Male

DRUGS (5)
  1. ALLOPURINOL. [Suspect]
     Active Substance: ALLOPURINOL
     Indication: HYPERTENSION
     Dosage: 300 MG, QD
     Route: 065
     Dates: start: 201908
  2. AMLODIPINE,VALSARTAN [Suspect]
     Active Substance: AMLODIPINE\VALSARTAN
     Indication: HYPERTENSION
     Dosage: 1 DF, QD (1 DOSAGE FORM = AMLODIPINE/VALSARTAN 5 MG/160 MG)
     Route: 048
     Dates: start: 201908
  3. FUROSEMIDE. [Suspect]
     Active Substance: FUROSEMIDE
     Indication: ACUTE KIDNEY INJURY
     Dosage: 20 MG, BID
     Route: 048
     Dates: start: 201908
  4. PIPERACILLIN/TAZOBACTAM [Suspect]
     Active Substance: PIPERACILLIN SODIUM\TAZOBACTAM SODIUM
     Indication: PRODUCT USED FOR UNKNOWN INDICATION
     Dosage: UNK
     Route: 048
  5. FUROSEMIDE. [Suspect]
     Active Substance: FUROSEMIDE
     Indication: POLYURIA
     Dosage: 40 MILLIGRAM DAILY
     Route: 048

REACTIONS (13)
  - Hypernatraemia [Recovered/Resolved]
  - Metabolic alkalosis [Recovered/Resolved]
  - Off label use [Unknown]
  - Metabolic alkalosis [Recovered/Resolved]
  - Ileus paralytic [Recovered/Resolved]
  - Hypochloraemia [Recovered/Resolved]
  - Metabolic alkalosis [Recovered/Resolved]
  - Acute kidney injury [Recovered/Resolved]
  - Ileus [Recovered/Resolved]
  - Hypokalaemia [Recovered/Resolved]
  - Hyperuricaemia [Recovered/Resolved]
  - Hypovolaemia [Recovered/Resolved]
  - Condition aggravated [Unknown]

NARRATIVE: CASE EVENT DATE: 201908
